FAERS Safety Report 8344502-4 (Version None)
Quarter: 2012Q2

REPORT INFORMATION
  Report Type: 
  Country: None (occurrence: None)
  Receive Date: 20120508
  Receipt Date: 20120503
  Transmission Date: 20120825
  Serious: Yes (Other)
  Sender: FDA-Public Use
  Company Number: PHHY2011CR41664

PATIENT
  Age: 72 Year
  Sex: Female

DRUGS (4)
  1. PLAVIX [Concomitant]
     Dosage: 75 MG, PER DAY
     Route: 048
  2. RASILEZ HCT [Suspect]
     Indication: HYPERTENSION
     Dosage: 1 DF, QD
     Route: 048
     Dates: start: 20101201
  3. LOVASTATIN [Concomitant]
     Dosage: 20 MG, PER DAY
     Route: 048
  4. EXFORGE [Concomitant]
     Dosage: 1 DF, PER DAY
     Route: 048

REACTIONS (2)
  - RENAL ARTERY STENOSIS [None]
  - BLOOD CREATININE INCREASED [None]
